FAERS Safety Report 6129940-2 (Version None)
Quarter: 2009Q1

REPORT INFORMATION
  Report Type: 
  Country: None (occurrence: None)
  Receive Date: 20090323
  Receipt Date: 20090323
  Transmission Date: 20090719
  Serious: Yes (Life-Threatening)
  Sender: FDA-Public Use
  Company Number: None

PATIENT
  Age: 49 Year
  Sex: Female
  Weight: 47.6277 kg

DRUGS (1)
  1. MIRTAZAPINE [Suspect]
     Indication: DEPRESSION
     Dosage: 1 AT BEDTIME TOOK 1/2 DOSE FOR PO
     Route: 048
     Dates: start: 20090102, end: 20090104

REACTIONS (6)
  - EMOTIONAL DISTRESS [None]
  - FEELING ABNORMAL [None]
  - HYPERACUSIS [None]
  - IRRITABILITY [None]
  - SCREAMING [None]
  - SUICIDAL IDEATION [None]
